FAERS Safety Report 7810864-7 (Version None)
Quarter: 2011Q4

REPORT INFORMATION
  Report Type: 
  Country: None (occurrence: None)
  Receive Date: 20111013
  Receipt Date: 20110929
  Transmission Date: 20120403
  Serious: Yes (Hospitalization)
  Sender: FDA-Public Use
  Company Number: US-JNJFOC-20111003970

PATIENT
  Age: 31 Year
  Sex: Male

DRUGS (3)
  1. TRAMADOL HCL [Suspect]
     Indication: PRODUCT USED FOR UNKNOWN INDICATION
     Dosage: 84 MG OF 50 TABLETS
     Route: 048
  2. DULOXETIME HYDROCHLORIDE [Interacting]
     Indication: PRODUCT USED FOR UNKNOWN INDICATION
     Route: 065
  3. RISPERIDONE [Interacting]
     Indication: PRODUCT USED FOR UNKNOWN INDICATION
     Route: 065

REACTIONS (6)
  - INTENTIONAL OVERDOSE [None]
  - TACHYCARDIA [None]
  - TONIC CONVULSION [None]
  - DRUG INTERACTION [None]
  - WHITE BLOOD CELL COUNT INCREASED [None]
  - DRUG SCREEN FALSE POSITIVE [None]
